FAERS Safety Report 14979762 (Version 1)
Quarter: 2018Q2

REPORT INFORMATION
  Report Type: Spontaneous
  Country: GR (occurrence: GR)
  Receive Date: 20180606
  Receipt Date: 20180606
  Transmission Date: 20180711
  Serious: Yes (Other)
  Sender: FDA-Public Use
  Company Number: PHHY2009GR38894

PATIENT
  Age: 25 Year
  Sex: Female

DRUGS (3)
  1. FLUORESCEIN SODIUM. [Suspect]
     Active Substance: FLUORESCEIN SODIUM
     Indication: ANGIOGRAM RETINA
     Dosage: UNK
     Route: 065
  2. INDOCYANINE GREEN. [Concomitant]
     Active Substance: INDOCYANINE GREEN
     Indication: CHOROIDAL NEOVASCULARISATION
     Dosage: UNK
     Route: 065
  3. BEVACIZUMAB. [Suspect]
     Active Substance: BEVACIZUMAB
     Indication: CHOROIDAL NEOVASCULARISATION
     Dosage: 1.25 MG, UNK
     Route: 031

REACTIONS (2)
  - Maternal exposure during pregnancy [Unknown]
  - Abortion spontaneous [Unknown]
